FAERS Safety Report 5745409-9 (Version None)
Quarter: 2008Q2

REPORT INFORMATION
  Report Type: 
  Country: None (occurrence: None)
  Receive Date: 20080521
  Receipt Date: 20080513
  Transmission Date: 20081010
  Serious: Yes (Hospitalization, Other)
  Sender: FDA-Public Use
  Company Number: US-ASTRAZENECA-2007UW01794

PATIENT
  Age: 21942 Day
  Sex: Male
  Weight: 79.5 kg

DRUGS (3)
  1. SEROQUEL [Suspect]
     Indication: DEPRESSION
     Route: 048
     Dates: start: 20031201
  2. SEROQUEL [Suspect]
     Indication: SCHIZOPHRENIA
     Route: 048
     Dates: start: 20031201
  3. RISPERDAL [Suspect]
     Dates: start: 20041101

REACTIONS (3)
  - BLINDNESS [None]
  - HOSPITALISATION [None]
  - TYPE 2 DIABETES MELLITUS [None]
